FAERS Safety Report 6515227-2 (Version None)
Quarter: 2009Q4

REPORT INFORMATION
  Report Type: 
  Country: None (occurrence: None)
  Receive Date: 20091223
  Receipt Date: 20091217
  Transmission Date: 20100525
  Serious: Yes (Death, Life-Threatening, Hospitalization, Disabling)
  Sender: FDA-Public Use
  Company Number: JP-SOLVAY-00309006710

PATIENT
  Age: 26720 Day
  Sex: Female
  Weight: 36 kg

DRUGS (41)
  1. CREON [Suspect]
     Indication: PANCREATECTOMY
     Dosage: DAILY DOSE: 12 DOSAGE FORM
     Route: 048
     Dates: start: 20090728, end: 20091104
  2. CREON [Suspect]
     Dosage: DAILY DOSE: 12 DOSAGE FORM
     Route: 048
     Dates: start: 20091118, end: 20091201
  3. PROTECADIN [Concomitant]
     Indication: GASTROINTESTINAL DISORDER
     Dosage: DAILY DOSE: 20 MILLIGRAM(S)
     Route: 048
     Dates: start: 20090727, end: 20091104
  4. PROTECADIN [Concomitant]
     Dosage: DAILY DOSE:  UNKNOWN
     Route: 048
     Dates: start: 20091116
  5. CAMOSTATE [Concomitant]
     Indication: POST PROCEDURAL DISCOMFORT
     Dosage: DAILY DOSE: 300 MILLIGRAM(S)
     Route: 048
     Dates: start: 20090727, end: 20091104
  6. CAMOSTATE [Concomitant]
     Dosage: DAILY DOSE:  UNKNOWN
     Route: 048
     Dates: start: 20091116
  7. GASMOTIN [Concomitant]
     Indication: GASTROINTESTINAL DISORDER
     Dosage: DAILY DOSE: 15 MILLIGRAM(S)
     Route: 048
     Dates: start: 20090727, end: 20091104
  8. LOPEMIN [Concomitant]
     Indication: DIARRHOEA
     Dosage: DAILY DOSE: 4 MILLIGRAM(S)
     Route: 048
     Dates: start: 20090727, end: 20091104
  9. LOPEMIN [Concomitant]
     Dosage: DAILY DOSE:  UNKNOWN
     Route: 048
     Dates: start: 20091116
  10. LASIX [Concomitant]
     Indication: MALIGNANT ASCITES
     Dosage: DAILY DOSE: 40 MILLIGRAM(S)
     Route: 048
     Dates: start: 20090727, end: 20091104
  11. LASIX [Concomitant]
     Dosage: DAILY DOSE:  UNKNOWN
     Route: 048
     Dates: start: 20091116
  12. CRAVIT [Concomitant]
     Indication: CONJUNCTIVITIS
     Dosage: DAILY DOSE:  UNKNOWN; ROUTE: EL; AS USED: ADEQUATE DOSE
     Route: 050
     Dates: start: 20090727, end: 20091104
  13. RINDERON-V [Concomitant]
     Indication: ECZEMA
     Dosage: DAILY DOSE:  UNKNOWN, AS USED: ADEQUTAE DOSE; ROUTE: TRANSDERMAL
     Route: 050
     Dates: start: 20090727, end: 20091104
  14. AMARYL [Concomitant]
     Indication: DIABETES MELLITUS
     Dosage: DAILY DOSE: 1 MILLIGRAM(S)
     Route: 048
     Dates: start: 20090730, end: 20090915
  15. TS-1 [Concomitant]
     Indication: METASTASES TO LYMPH NODES
     Dosage: DAILY DOSE: 50 MILLIGRAM(S)
     Route: 048
     Dates: start: 20090730, end: 20091104
  16. ISOTONIC SODIUM CHLORIDE SOLUTION [Concomitant]
     Indication: THERAPEUTIC PROCEDURE
     Dosage: DAILY DOSE: 200 MILLILITRE(S)
     Route: 042
     Dates: start: 20090813, end: 20090813
  17. ISOTONIC SODIUM CHLORIDE SOLUTION [Concomitant]
     Dosage: DAILY DOSE: 200 MILLILITRE(S)
     Route: 042
     Dates: start: 20090827, end: 20090827
  18. ISOTONIC SODIUM CHLORIDE SOLUTION [Concomitant]
     Dosage: DAILY DOSE: 200 MILLILITRE(S)
     Route: 042
     Dates: start: 20090910, end: 20090910
  19. ISOTONIC SODIUM CHLORIDE SOLUTION [Concomitant]
     Dosage: DAILY DOSE: 200 MILLILITRE(S)
     Route: 042
     Dates: start: 20091015, end: 20091015
  20. ISOTONIC SODIUM CHLORIDE SOLUTION [Concomitant]
     Dosage: DAILY DOSE: 200 MILLILITRE(S)
     Route: 042
     Dates: start: 20091029, end: 20091029
  21. DEXART [Concomitant]
     Indication: GASTROINTESTINAL DISORDER
     Dosage: DAILY DOSE: 4 MILLIGRAM(S)
     Route: 042
     Dates: start: 20090813, end: 20090813
  22. DEXART [Concomitant]
     Dosage: DAILY DOSE: 4 MILLIGRAM(S)
     Route: 042
     Dates: start: 20090827, end: 20090827
  23. DEXART [Concomitant]
     Dosage: DAILY DOSE: 4 MILLIGRAM(S)
     Route: 042
     Dates: start: 20090910, end: 20090910
  24. DEXART [Concomitant]
     Dosage: DAILY DOSE: 4 MILLIGRAM(S)
     Route: 042
     Dates: start: 20091015, end: 20091015
  25. DEXART [Concomitant]
     Dosage: DAILY DOSE: 4 MILLIGRAM(S)
     Route: 042
     Dates: start: 20091029, end: 20091029
  26. GRANISETRON [Concomitant]
     Indication: GASTROINTESTINAL DISORDER
     Dosage: DAILY DOSE: 3 MILLIGRAM(S)
     Route: 042
     Dates: start: 20090813, end: 20090813
  27. GRANISETRON [Concomitant]
     Dosage: DAILY DOSE: 3 MILLIGRAM(S)
     Route: 042
     Dates: start: 20090827, end: 20090827
  28. GRANISETRON [Concomitant]
     Dosage: DAILY DOSE: 3 MILLIGRAM(S)
     Route: 042
     Dates: start: 20090910, end: 20090910
  29. GRANISETRON [Concomitant]
     Dosage: DAILY DOSE: 3 MILLIGRAM(S)
     Route: 042
     Dates: start: 20091015, end: 20091015
  30. GRANISETRON [Concomitant]
     Dosage: DAILY DOSE: 3 MILLIGRAM(S)
     Route: 042
     Dates: start: 20091029, end: 20091029
  31. GEMZAR [Concomitant]
     Indication: METASTASES TO LYMPH NODES
     Dosage: DAILY DOSE: 1 GRAM(S)
     Route: 042
     Dates: start: 20090813, end: 20090813
  32. GEMZAR [Concomitant]
     Dosage: DAILY DOSE: 1 GRAM(S)
     Route: 042
     Dates: start: 20090827, end: 20090827
  33. GEMZAR [Concomitant]
     Dosage: DAILY DOSE: 1 GRAM(S)
     Route: 042
     Dates: start: 20090910, end: 20090910
  34. GEMZAR [Concomitant]
     Dosage: DAILY DOSE: 1 GRAM(S)
     Route: 042
     Dates: start: 20091015, end: 20091015
  35. GEMZAR [Concomitant]
     Dosage: DAILY DOSE: 1 GRAM(S)
     Route: 042
     Dates: start: 20091029, end: 20091029
  36. LACTEC [Concomitant]
     Indication: DEHYDRATION
     Dosage: DAILY DOSE: 500 MILLILITRE(S)
     Route: 042
     Dates: start: 20090910, end: 20090916
  37. SOLDEM 3A [Concomitant]
     Indication: DEHYDRATION
     Dosage: DAILY DOSE: 500 MILLILITRE(S)
     Route: 042
     Dates: start: 20090911, end: 20090913
  38. HUMULIN R [Concomitant]
     Indication: DIABETES MELLITUS
     Dosage: DAILY DOSE:  24 TO 36 IU; AS USED: 24 TO 36 IU; FREQUENCY: ONCE A DAY.
     Route: 058
     Dates: start: 20090910, end: 20090914
  39. NOVORAPID [Concomitant]
     Indication: DIABETES MELLITUS
     Dosage: DAILY DOSE: 18 TO 30 IU; AS USED: 18 TO 30 IU; FREQUENCY: ONCE A DAY.
     Route: 058
     Dates: start: 20090915, end: 20090924
  40. HUMALOG MIX [Concomitant]
     Indication: DIABETES MELLITUS
     Dosage: DAILY DOSE:  22 TO 32 IU; AS USED: 22 TO 32 IU; FREQUENCY: ONCE A DAY.
     Route: 058
     Dates: start: 20090925, end: 20091104
  41. GLUCOSE [Concomitant]
     Indication: DIABETES MELLITUS
     Dosage: DAILY DOSE: 1 P
     Route: 042
     Dates: start: 20090930, end: 20090930

REACTIONS (1)
  - MALIGNANT ASCITES [None]
